FAERS Safety Report 10229519 (Version 1)
Quarter: 2014Q2

REPORT INFORMATION
  Report Type: Spontaneous
  Country: US (occurrence: None)
  Receive Date: 20140519
  Receipt Date: 20140519
  Transmission Date: 20141212
  Serious: Yes (Other)
  Sender: FDA-Public Use
  Company Number: 1698775

PATIENT
  Age: 60 Year
  Sex: Male

DRUGS (2)
  1. PROPOFOL 1% INJECTABLE EMULSION, 10 MG/ML [Suspect]
     Indication: AGITATION
     Dosage: 35 MCG / KG /MIN,  NOT REPORTED , UNKNOWN { 03/24/2013 THERAPY DATES
     Route: 041
     Dates: end: 20130324
  2. MORPHINE SULFATE INJ, USP (MORPHINE SULPHATE) [Suspect]
     Indication: PAIN
     Dosage: 6 MG / HOUR , NOT REPORTED, UNKNOWN{ UNKNOWN - 03/24/2013 THERAPY DATES
     Route: 042
     Dates: end: 20130324

REACTIONS (2)
  - Incorrect drug administration rate [None]
  - Blood pressure decreased [None]
